FAERS Safety Report 13968586 (Version 2)
Quarter: 2017Q4

REPORT INFORMATION
  Report Type: Report from Study
  Country: None (occurrence: US)
  Receive Date: 20170914
  Receipt Date: 20171107
  Transmission Date: 20180320
  Serious: Yes (Hospitalization)
  Sender: FDA-Public Use
  Company Number: US-VIFOR (INTERNATIONAL) INC.-VIT-2017-09396

PATIENT
  Sex: Male

DRUGS (11)
  1. VELTASSA [Suspect]
     Active Substance: PATIROMER
     Indication: HYPERKALAEMIA
     Route: 048
     Dates: start: 201704, end: 2017
  2. VELTASSA [Suspect]
     Active Substance: PATIROMER
     Route: 048
     Dates: start: 2017
  3. LOSARTAN POTASSIUM. [Concomitant]
     Active Substance: LOSARTAN POTASSIUM
  4. LINZESS [Concomitant]
     Active Substance: LINACLOTIDE
  5. PROAIR HFA [Concomitant]
     Active Substance: ALBUTEROL SULFATE
  6. TAMSULOSIN [Concomitant]
     Active Substance: TAMSULOSIN
  7. ASPIRIN. [Concomitant]
     Active Substance: ASPIRIN
  8. FLUTICASONE. [Concomitant]
     Active Substance: FLUTICASONE
  9. LORATADINE. [Concomitant]
     Active Substance: LORATADINE
  10. PRAVASTATIN. [Concomitant]
     Active Substance: PRAVASTATIN
  11. MONTELUKAST [Concomitant]
     Active Substance: MONTELUKAST SODIUM

REACTIONS (12)
  - Bronchitis [Recovering/Resolving]
  - Chest discomfort [Recovering/Resolving]
  - Vomiting [Recovering/Resolving]
  - Feeling abnormal [Recovering/Resolving]
  - Cough [Unknown]
  - Hypersensitivity [Unknown]
  - Product physical issue [Unknown]
  - Drug dose omission [Unknown]
  - Malaise [Recovering/Resolving]
  - Constipation [Unknown]
  - Productive cough [Unknown]
  - Choking [Recovering/Resolving]

NARRATIVE: CASE EVENT DATE: 2017
